FAERS Safety Report 17269599 (Version 5)
Quarter: 2020Q2

REPORT INFORMATION
  Report Type: Report from Study
  Country: US (occurrence: US)
  Receive Date: 20200114
  Receipt Date: 20200629
  Transmission Date: 20200713
  Serious: Yes (Hospitalization)
  Sender: FDA-Public Use
  Company Number: US-ACTELION-A-NJ2018-179208

PATIENT
  Sex: Female
  Weight: 53.06 kg

DRUGS (3)
  1. OPSUMIT [Suspect]
     Active Substance: MACITENTAN
     Indication: PULMONARY ARTERIAL HYPERTENSION
     Dosage: 10 MG, QD
     Route: 048
  2. TADALAFIL. [Concomitant]
     Active Substance: TADALAFIL
  3. TYVASO [Suspect]
     Active Substance: TREPROSTINIL
     Indication: PRODUCT USED FOR UNKNOWN INDICATION
     Route: 065

REACTIONS (14)
  - Eye swelling [Unknown]
  - Cough [Unknown]
  - Upper respiratory tract infection [Unknown]
  - Ocular hyperaemia [Unknown]
  - Fatigue [Unknown]
  - Dyspnoea [Unknown]
  - Eye irritation [Unknown]
  - Dizziness [Unknown]
  - Nasopharyngitis [Unknown]
  - Wheezing [Unknown]
  - Epistaxis [Not Recovered/Not Resolved]
  - Rash [Unknown]
  - Rhinovirus infection [Unknown]
  - Asthenia [Unknown]
